FAERS Safety Report 6935015-2 (Version None)
Quarter: 2010Q3

REPORT INFORMATION
  Report Type: 
  Country: None (occurrence: None)
  Receive Date: 20100822
  Receipt Date: 20100809
  Transmission Date: 20110219
  Serious: Yes (Disabling)
  Sender: FDA-Public Use
  Company Number: PHHY2010CA52904

PATIENT
  Sex: Female

DRUGS (7)
  1. ZOLEDRONIC [Suspect]
     Indication: OSTEOPOROSIS
     Dosage: 5 MG
     Route: 042
     Dates: start: 20090616
  2. ZOLEDRONIC [Suspect]
     Dosage: UNK
  3. LIPITOR [Concomitant]
  4. PRILOSEC [Concomitant]
  5. CELEXA [Concomitant]
  6. CALCIUM [Concomitant]
  7. VITAMIN D [Concomitant]

REACTIONS (1)
  - HAND FRACTURE [None]
